FAERS Safety Report 13988653 (Version 1)
Quarter: 2017Q3

REPORT INFORMATION
  Report Type: Spontaneous
  Country: US (occurrence: US)
  Receive Date: 20170919
  Receipt Date: 20170919
  Transmission Date: 20171128
  Serious: No
  Sender: FDA-Public Use
  Company Number: US-AMNEAL PHARMACEUTICALS-2016AMN00715

PATIENT
  Age: 66 Year
  Sex: Female
  Weight: 83.9 kg

DRUGS (1)
  1. GABAPENTIN. [Suspect]
     Active Substance: GABAPENTIN
     Indication: SCIATICA
     Dosage: 300 MG, 3X/DAY
     Route: 048
     Dates: start: 201610, end: 201611

REACTIONS (5)
  - Product substitution issue [Unknown]
  - Eye pain [Recovering/Resolving]
  - Bursitis [Recovering/Resolving]
  - Tendonitis [Recovering/Resolving]
  - Headache [Recovering/Resolving]

NARRATIVE: CASE EVENT DATE: 201610
